FAERS Safety Report 8817008 (Version 1)
Quarter: 2012Q4

REPORT INFORMATION
  Report Type: 
  Country: US (occurrence: None)
  Receive Date: 20121003
  Receipt Date: 20121003
  Transmission Date: 20130627
  Serious: Yes (Hospitalization)
  Sender: FDA-Public Use
  Company Number: None

PATIENT
  Sex: Male
  Weight: 96.1 kg

DRUGS (1)
  1. INTERFERON ALFA-2B [Suspect]
     Dates: start: 20120828

REACTIONS (5)
  - Mania [None]
  - Agitation [None]
  - Restlessness [None]
  - Abnormal behaviour [None]
  - Aggression [None]
